FAERS Safety Report 21418487 (Version 1)
Quarter: 2022Q4

REPORT INFORMATION
  Report Type: Spontaneous
  Country: CZ (occurrence: CZ)
  Receive Date: 20221006
  Receipt Date: 20221006
  Transmission Date: 20230113
  Serious: Yes (Hospitalization, Other)
  Sender: FDA-Public Use
  Company Number: CZ-BRISTOL-MYERS SQUIBB COMPANY-2022-116295

PATIENT
  Age: 52 Year
  Sex: Male
  Weight: 107 kg

DRUGS (4)
  1. NIVOLUMAB [Suspect]
     Active Substance: NIVOLUMAB
     Indication: Metastatic renal cell carcinoma
     Dosage: DOSE : UNAV;     FREQ : EVERY 3 WEEKS
     Route: 065
     Dates: start: 20201002, end: 2020
  2. IPILIMUMAB [Suspect]
     Active Substance: IPILIMUMAB
     Indication: Metastatic renal cell carcinoma
     Route: 065
     Dates: start: 20201002, end: 2020
  3. NADROPARIN CALCIUM [Concomitant]
     Active Substance: NADROPARIN CALCIUM
     Indication: Product used for unknown indication
     Route: 065
  4. UNSPECIFIED INGREDIENT [Concomitant]
     Active Substance: UNSPECIFIED INGREDIENT
     Indication: Product used for unknown indication
     Route: 065
     Dates: start: 20200805

REACTIONS (9)
  - Fatigue [Unknown]
  - Rash pruritic [Unknown]
  - Dizziness [Unknown]
  - Blood pressure decreased [Unknown]
  - Headache [Unknown]
  - Decreased appetite [Unknown]
  - Somnolence [Unknown]
  - Renal failure [Unknown]
  - Swelling [Unknown]

NARRATIVE: CASE EVENT DATE: 20201001
